FAERS Safety Report 8472132-2 (Version None)
Quarter: 2012Q2

REPORT INFORMATION
  Report Type: 
  Country: None (occurrence: None)
  Receive Date: 20120627
  Receipt Date: 20120622
  Transmission Date: 20120825
  Serious: Yes (Death, Other)
  Sender: FDA-Public Use
  Company Number: US-BRISTOL-MYERS SQUIBB COMPANY-16556763

PATIENT
  Sex: Male
  Weight: 72 kg

DRUGS (1)
  1. YERVOY [Suspect]
     Dosage: TOTAL: 4 DOSES LAST INF 3APR12
     Dates: end: 20120403

REACTIONS (2)
  - RASH [None]
  - DEATH [None]
